FAERS Safety Report 9278168 (Version 2)
Quarter: 2013Q2

REPORT INFORMATION
  Report Type: Report from Study
  Country: US (occurrence: US)
  Receive Date: 20130508
  Receipt Date: 20130610
  Transmission Date: 20140414
  Serious: Yes (Hospitalization)
  Sender: FDA-Public Use
  Company Number: PHEH2013US010001

PATIENT
  Sex: Female
  Weight: 106.85 kg

DRUGS (19)
  1. GLEEVEC [Suspect]
     Indication: CHRONIC MYELOID LEUKAEMIA
     Dosage: 400 MG, DAILY
     Route: 048
     Dates: start: 20130308
  2. GLEEVEC [Suspect]
     Dosage: 400 MG, QD
     Dates: end: 20130423
  3. ACETAMINOPHEN W/CODEINE [Concomitant]
     Dosage: UNK UKN, UNK
  4. ALLOPURINOL [Concomitant]
     Dosage: UNK UKN, UNK
  5. BENGAY PAIN RELIEVING [Concomitant]
     Dosage: UNK UKN, UNK
  6. CLARITIN [Concomitant]
     Dosage: 10 MG, QD
     Route: 048
  7. ENOXAPARIN [Concomitant]
     Dosage: UNK UKN, UNK
  8. FERREX 150 FORTE [Concomitant]
     Dosage: UNK UKN, UNK
  9. WARFARIN SODIUM [Concomitant]
     Dosage: UNK UKN, UNK
  10. AMLODIPIN BESYLATE AND BENAZEPRIL HYDROCHLORI [Concomitant]
     Dosage: 05-20 MG, QD
     Route: 048
  11. ARIXTRA [Concomitant]
     Dosage: 7.5 MG/0.6ML, QD
     Route: 058
     Dates: start: 20130507
  12. NIFEREX FORTE [Concomitant]
     Dosage: 01 DF, QD
     Route: 048
     Dates: start: 20130308
  13. OMEPRAZOLE [Concomitant]
     Dosage: 01 DF, QD
     Route: 048
  14. PROCHLORPERAZINE MALEATE [Concomitant]
     Dosage: 01 DF, QID
     Route: 048
     Dates: start: 20130430
  15. PROVENTIL HFA [Concomitant]
     Dosage: UNK UKN, UNK
  16. SPRYCEL [Concomitant]
     Dosage: 01 DF, QD
     Dates: start: 20130515
  17. ZOFRAN [Concomitant]
     Dosage: 01 DF, TID
     Route: 048
     Dates: start: 20130325
  18. FIORICET [Concomitant]
     Dosage: 01 DF, BID
     Route: 048
  19. NORVASC [Concomitant]

REACTIONS (5)
  - Drug intolerance [Unknown]
  - Malaise [Unknown]
  - Fatigue [Recovered/Resolved]
  - Diarrhoea [Recovered/Resolved]
  - Nausea [Recovered/Resolved]
